FAERS Safety Report 9940716 (Version 1)
Quarter: 2014Q1

REPORT INFORMATION
  Report Type: Spontaneous
  Country: US (occurrence: US)
  Receive Date: 20140303
  Receipt Date: 20140303
  Transmission Date: 20141002
  Serious: No
  Sender: FDA-Public Use
  Company Number: US-PFIZER INC-2014059168

PATIENT
  Age: 67 Year
  Sex: Female
  Weight: 72.6 kg

DRUGS (6)
  1. LYRICA [Suspect]
     Indication: TRIGEMINAL NEURALGIA
     Dosage: 50 MG, 2X/DAY
     Dates: start: 20010324
  2. LYRICA [Suspect]
     Dosage: 300 MG, 1X/DAY
  3. LYRICA [Suspect]
     Dosage: 75 MG, 1X/DAY
  4. LYRICA [Suspect]
     Dosage: 75 MG, AFTER EVERY TWO DAYS
  5. LYRICA [Suspect]
     Dosage: 75 MG, EVERY THREE DAYS
  6. LYRICA [Suspect]
     Dosage: UNK
     Dates: end: 201402

REACTIONS (1)
  - Weight increased [Recovering/Resolving]
